FAERS Safety Report 6258610-5 (Version None)
Quarter: 2009Q3

REPORT INFORMATION
  Report Type: 
  Country: None (occurrence: None)
  Receive Date: 20090707
  Receipt Date: 20090629
  Transmission Date: 20100115
  Serious: Yes (Hospitalization)
  Sender: FDA-Public Use
  Company Number: US-JNJFOC-20090609768

PATIENT
  Age: 52 Year
  Sex: Female
  Weight: 79.38 kg

DRUGS (4)
  1. TYLENOL (CAPLET) [Suspect]
     Route: 048
  2. TYLENOL (CAPLET) [Suspect]
     Indication: INFLUENZA LIKE ILLNESS
     Dosage: RECOMMENDED DOSE ON THE PACKAGING LABEL FOR 3 DAYS
     Route: 048
  3. THERAFLU [Suspect]
     Indication: INFLUENZA LIKE ILLNESS
  4. MOTRIN [Concomitant]
     Indication: SCIATICA

REACTIONS (3)
  - DRUG ADMINISTRATION ERROR [None]
  - HEPATOTOXICITY [None]
  - RENAL FAILURE [None]
